FAERS Safety Report 8486021-0 (Version None)
Quarter: 2012Q2

REPORT INFORMATION
  Report Type: 
  Country: None (occurrence: None)
  Receive Date: 20120626
  Receipt Date: 20120613
  Transmission Date: 20120825
  Serious: Yes (Other)
  Sender: FDA-Public Use
  Company Number: CIP-2012-00024

PATIENT
  Sex: 0

DRUGS (1)
  1. IRINOTECAN HCL [Suspect]
     Indication: BILE DUCT CANCER
     Dosage: DEB-TACE-IRINOTECAN ELUTING BEADS (200 MG)

REACTIONS (3)
  - EMPYEMA [None]
  - PLEURAL DISORDER [None]
  - POST PROCEDURAL BILE LEAK [None]
